FAERS Safety Report 21749277 (Version 1)
Quarter: 2022Q4

REPORT INFORMATION
  Report Type: Spontaneous
  Country: US (occurrence: None)
  Receive Date: 20221217
  Receipt Date: 20221217
  Transmission Date: 20230113
  Serious: Yes (Hospitalization)
  Sender: FDA-Public Use
  Company Number: None

PATIENT
  Sex: Male
  Weight: 14.4 kg

DRUGS (5)
  1. DAUNORUBICIN [Suspect]
     Active Substance: DAUNORUBICIN
  2. METHOTREXATE [Concomitant]
     Active Substance: METHOTREXATE
  3. PREDNISONE [Concomitant]
     Active Substance: PREDNISONE
  4. GLEEVEC [Concomitant]
     Active Substance: IMATINIB MESYLATE
  5. VINCRISTINE SULFATE [Concomitant]
     Active Substance: VINCRISTINE SULFATE

REACTIONS (6)
  - Hypophagia [None]
  - Diarrhoea [None]
  - Viral infection [None]
  - Cardio-respiratory arrest [None]
  - Hypotonia [None]
  - Eye movement disorder [None]

NARRATIVE: CASE EVENT DATE: 20221211
